FAERS Safety Report 8364336-4 (Version None)
Quarter: 2012Q2

REPORT INFORMATION
  Report Type: 
  Country: None (occurrence: None)
  Receive Date: 20120516
  Receipt Date: 20120511
  Transmission Date: 20120825
  Serious: Yes (Death)
  Sender: FDA-Public Use
  Company Number: US-ASTRAZENECA-2010SE31493

PATIENT
  Age: 76 Year
  Sex: Female

DRUGS (5)
  1. CITALOPRAM HYDROBROMIDE [Concomitant]
  2. KLONOPIN [Concomitant]
  3. FIORINAL [Concomitant]
  4. LORTAB [Concomitant]
  5. CRESTOR [Suspect]
     Route: 048
     Dates: start: 20051207

REACTIONS (6)
  - GALLBLADDER CANCER [None]
  - SPEECH DISORDER [None]
  - MALAISE [None]
  - BLOOD HOMOCYSTEINE INCREASED [None]
  - MIGRAINE [None]
  - UPPER-AIRWAY COUGH SYNDROME [None]
